FAERS Safety Report 4293249-2 (Version None)
Quarter: 2004Q1

REPORT INFORMATION
  Report Type: 
  Country: None (occurrence: None)
  Receive Date: 20040126
  Receipt Date: 20031015
  Transmission Date: 20041129
  Serious: No
  Sender: FDA-Public Use
  Company Number: USA031049922

PATIENT
  Age: 74 Year
  Sex: Female
  Weight: 63 kg

DRUGS (8)
  1. FORTEO [Suspect]
     Indication: OSTEOPOROSIS
     Dates: start: 20030905
  2. SYNTHROID [Concomitant]
  3. ZYRTEC [Concomitant]
  4. PREVACID [Concomitant]
  5. CALTRATE (CALCIUM CARBONATE) [Concomitant]
  6. VITAMIN E [Concomitant]
  7. MULTIPLE B VITAMINS [Concomitant]
  8. BUSPAR [Concomitant]

REACTIONS (3)
  - INSOMNIA [None]
  - OEDEMA PERIPHERAL [None]
  - PAIN IN EXTREMITY [None]
